FAERS Safety Report 5006164-3 (Version None)
Quarter: 2006Q1

REPORT INFORMATION
  Report Type: 
  Country: None (occurrence: None)
  Receive Date: 20060328
  Receipt Date: 20050422
  Transmission Date: 20060701
  Serious: Yes (Other)
  Sender: FDA-Public Use
  Company Number: K200500464

PATIENT
  Age: 58 Year
  Sex: Female
  Weight: 79.4 kg

DRUGS (8)
  1. ALTACE [Suspect]
     Indication: PROPHYLAXIS
     Dosage: 2.5 MG, QD, ORAL
     Route: 048
     Dates: start: 20040901, end: 20050301
  2. VYTORIN [Concomitant]
  3. MACRODANTIN [Concomitant]
  4. LANTUS [Concomitant]
  5. ASPIRIN [Concomitant]
  6. VITAMIN B6 [Concomitant]
  7. COQ10 (UBIDECARENONE) [Concomitant]
  8. VITAMIN E [Concomitant]

REACTIONS (6)
  - LOSS OF CONSCIOUSNESS [None]
  - MIGRAINE [None]
  - MOTOR DYSFUNCTION [None]
  - SPINAL DISORDER [None]
  - VISION BLURRED [None]
  - VISUAL ACUITY REDUCED [None]
